FAERS Safety Report 22528312 (Version 2)
Quarter: 2023Q2

REPORT INFORMATION
  Report Type: Spontaneous
  Country: US (occurrence: US)
  Receive Date: 20230607
  Receipt Date: 20230615
  Transmission Date: 20230722
  Serious: Yes (Other)
  Sender: FDA-Public Use
  Company Number: US-drreddys-SPO/USA/23/0166181

PATIENT
  Age: 67 Year
  Sex: Male

DRUGS (1)
  1. ALLOPURINOL [Suspect]
     Active Substance: ALLOPURINOL
     Indication: Product used for unknown indication

REACTIONS (11)
  - Blindness transient [Recovering/Resolving]
  - Eyelid disorder [Recovering/Resolving]
  - Keratitis [Recovering/Resolving]
  - Ulcerative keratitis [Recovering/Resolving]
  - Subconjunctival fibrosis [Recovering/Resolving]
  - Limbal stem cell deficiency [Recovering/Resolving]
  - Trichiasis [Recovering/Resolving]
  - Conjunctivitis bacterial [Recovering/Resolving]
  - Meibomian gland dysfunction [Recovering/Resolving]
  - Fusarium infection [Recovering/Resolving]
  - Stevens-Johnson syndrome [Unknown]

NARRATIVE: CASE EVENT DATE: 20190101
